FAERS Safety Report 6690734-0 (Version None)
Quarter: 2010Q2

REPORT INFORMATION
  Report Type: 
  Country: None (occurrence: None)
  Receive Date: 20100421
  Receipt Date: 20100413
  Transmission Date: 20101027
  Serious: Yes (Hospitalization)
  Sender: FDA-Public Use
  Company Number: FR-BAXTER-2010BH009975

PATIENT
  Age: 37 Year
  Sex: Female

DRUGS (3)
  1. IFOSFAMIDE [Suspect]
     Indication: CERVIX CARCINOMA
     Route: 042
     Dates: start: 20100130, end: 20100131
  2. CISPLATIN [Suspect]
     Indication: CERVIX CARCINOMA
     Route: 042
     Dates: start: 20100129, end: 20100130
  3. BLEOMYCIN GENERIC [Suspect]
     Indication: CERVIX CARCINOMA
     Route: 065
     Dates: start: 20100127, end: 20100128

REACTIONS (2)
  - EPILEPSY [None]
  - HYPOKALAEMIA [None]
